FAERS Safety Report 5575975-8 (Version None)
Quarter: 2007Q4

REPORT INFORMATION
  Report Type: 
  Country: None (occurrence: None)
  Receive Date: 20071228
  Receipt Date: 20071219
  Transmission Date: 20080405
  Serious: Yes (Other)
  Sender: FDA-Public Use
  Company Number: US-JNJFOC-20071205437

PATIENT
  Sex: Female
  Weight: 58.97 kg

DRUGS (3)
  1. REMICADE [Suspect]
     Indication: CROHN'S DISEASE
     Route: 042
  2. PROPYLTHIOURACIL [Concomitant]
     Indication: HYPERTHYROIDISM
  3. VITAMIN D [Concomitant]

REACTIONS (3)
  - ARTHRALGIA [None]
  - INTESTINAL RESECTION [None]
  - VISION BLURRED [None]
